FAERS Safety Report 8489814-9 (Version None)
Quarter: 2012Q3

REPORT INFORMATION
  Report Type: 
  Country: None (occurrence: None)
  Receive Date: 20120705
  Receipt Date: 20120605
  Transmission Date: 20120928
  Serious: No
  Sender: FDA-Public Use
  Company Number: US-BAUSCH-2012BL003742

PATIENT
  Sex: Female

DRUGS (1)
  1. LATANOPROST [Suspect]
     Indication: GLAUCOMA
     Route: 047

REACTIONS (3)
  - EYE PRURITUS [None]
  - EYE PAIN [None]
  - OCULAR HYPERAEMIA [None]
